FAERS Safety Report 5272648-6 (Version None)
Quarter: 2007Q1

REPORT INFORMATION
  Report Type: 
  Country: None (occurrence: None)
  Receive Date: 20070320
  Receipt Date: 20070320
  Transmission Date: 20070707
  Serious: Yes (Life-Threatening, Hospitalization)
  Sender: FDA-Public Use
  Company Number: None

PATIENT
  Age: 28 Year
  Sex: Male
  Weight: 79.3795 kg

DRUGS (1)
  1. GEODON [Suspect]
     Indication: PSYCHOTIC DISORDER
     Dosage: 80 MG  BID (TWICE DAILY)  047 (ORAL)
     Route: 048
     Dates: start: 20060801, end: 20060901

REACTIONS (25)
  - ABDOMINAL PAIN [None]
  - ACUTE HEPATIC FAILURE [None]
  - ADVERSE DRUG REACTION [None]
  - BACK PAIN [None]
  - BLOOD URINE PRESENT [None]
  - BONE PAIN [None]
  - DIARRHOEA [None]
  - HEPATIC ENCEPHALOPATHY [None]
  - HYPERSOMNIA [None]
  - LIPASE INCREASED [None]
  - LYMPHOCYTE COUNT DECREASED [None]
  - MALAISE [None]
  - NAUSEA [None]
  - NEPHROPATHY TOXIC [None]
  - NEUTROPHIL COUNT INCREASED [None]
  - ORAL INTAKE REDUCED [None]
  - POLYDIPSIA [None]
  - PROTEIN URINE PRESENT [None]
  - PRURITUS [None]
  - RED BLOOD CELL COUNT INCREASED [None]
  - RENAL DISORDER [None]
  - URINARY CASTS [None]
  - URINE KETONE BODY PRESENT [None]
  - URINE LEUKOCYTE ESTERASE POSITIVE [None]
  - WEIGHT DECREASED [None]
